FAERS Safety Report 6618079-5 (Version None)
Quarter: 2010Q1

REPORT INFORMATION
  Report Type: 
  Country: None (occurrence: None)
  Receive Date: 20100308
  Receipt Date: 20100225
  Transmission Date: 20100710
  Serious: Yes (Disabling)
  Sender: FDA-Public Use
  Company Number: US-ROCHE-676892

PATIENT
  Sex: Female
  Weight: 87.5 kg

DRUGS (8)
  1. AVASTIN [Suspect]
     Route: 042
     Dates: start: 20081128, end: 20091009
  2. AVASTIN [Suspect]
     Route: 042
     Dates: start: 20091114
  3. HERCEPTIN [Suspect]
     Indication: BREAST CANCER
     Dosage: DURATION OF THERAPY: 1 YEAR
     Route: 042
     Dates: start: 20060714
  4. CAPECITABINE [Suspect]
     Route: 065
  5. CARBOPLATIN [Concomitant]
  6. ABRAXANE [Concomitant]
  7. ZOLADEX [Concomitant]
  8. ZOMETA [Concomitant]

REACTIONS (1)
  - MYELITIS TRANSVERSE [None]
